FAERS Safety Report 4802915-9 (Version None)
Quarter: 2005Q4

REPORT INFORMATION
  Report Type: 
  Country: None (occurrence: None)
  Receive Date: 20051019
  Receipt Date: 20041101
  Transmission Date: 20060501
  Serious: Yes (Death, Hospitalization, Other)
  Sender: FDA-Public Use
  Company Number: 200421042GDDC

PATIENT
  Age: 60 Year
  Sex: Male
  Weight: 90 kg

DRUGS (8)
  1. ARAVA [Suspect]
     Indication: RHEUMATOID ARTHRITIS
     Route: 048
     Dates: start: 20031201, end: 20041001
  2. PHYLLOCONTIN [Concomitant]
     Indication: ASTHMA
     Dosage: DOSE: UNK
     Route: 048
  3. FOSAMAX [Concomitant]
     Indication: OSTEOPOROSIS
     Route: 048
     Dates: start: 20020901
  4. VENTOLIN [Concomitant]
     Indication: ASTHMA
     Dosage: DOSE: UNK
  5. DELTACORTRIL [Concomitant]
     Indication: ASTHMA
     Dosage: DOSE: 5-10
  6. DELTACORTRIL [Concomitant]
     Indication: RHEUMATOID ARTHRITIS
     Dosage: DOSE: 5-10
  7. DIHYDROCODEINE [Concomitant]
     Indication: PAIN
     Route: 048
  8. FLUCLOXACILLIN [Concomitant]
     Indication: CELLULITIS
     Route: 048
     Dates: start: 20040930

REACTIONS (29)
  - ABDOMINAL DISCOMFORT [None]
  - ABDOMINAL PAIN [None]
  - ACUTE RESPIRATORY DISTRESS SYNDROME [None]
  - ALANINE AMINOTRANSFERASE INCREASED [None]
  - ANXIETY [None]
  - ASPARTATE AMINOTRANSFERASE INCREASED [None]
  - ATELECTASIS [None]
  - BILIRUBIN CONJUGATED INCREASED [None]
  - BLOOD BILIRUBIN INCREASED [None]
  - BLOOD CREATININE INCREASED [None]
  - BLOOD SODIUM DECREASED [None]
  - BLOOD UREA INCREASED [None]
  - CHOLURIA [None]
  - COAGULOPATHY [None]
  - DEHYDRATION [None]
  - HEPATIC FAILURE [None]
  - HEPATIC NECROSIS [None]
  - HEPATORENAL SYNDROME [None]
  - HYPERVENTILATION [None]
  - JAUNDICE [None]
  - JUGULAR VEIN DISTENSION [None]
  - OCULAR ICTERUS [None]
  - RESPIRATORY FAILURE [None]
  - SENSE OF OPPRESSION [None]
  - SHOCK [None]
  - TACHYCARDIA [None]
  - TACHYPNOEA [None]
  - VOMITING [None]
  - WHITE BLOOD CELL COUNT INCREASED [None]
